FAERS Safety Report 16376891 (Version 2)
Quarter: 2019Q2

REPORT INFORMATION
  Report Type: Report from Study
  Country: US (occurrence: US)
  Receive Date: 20190531
  Receipt Date: 20190614
  Transmission Date: 20190711
  Serious: Yes (Hospitalization)
  Sender: FDA-Public Use
  Company Number: US-EMD SERONO-9093570

PATIENT
  Age: 48 Year
  Sex: Male

DRUGS (1)
  1. MAVENCLAD [Suspect]
     Active Substance: CLADRIBINE
     Indication: MULTIPLE SCLEROSIS
     Dosage: FIRST CYCLE THERAPY: TWO TABLETS ON DAYS 1 TO 4 AND ONE TABLET ON DAY 5 (EACH TABLET OF 10 MG).
     Route: 048
     Dates: start: 20190424

REACTIONS (3)
  - Orchitis [Unknown]
  - Urosepsis [Unknown]
  - Device related infection [Unknown]

NARRATIVE: CASE EVENT DATE: 201905
